FAERS Safety Report 8886974 (Version 1)
Quarter: 2012Q4

REPORT INFORMATION
  Report Type: 
  Country: US (occurrence: US)
  Receive Date: 20121105
  Receipt Date: 20121105
  Transmission Date: 20130627
  Serious: Yes (Other)
  Sender: FDA-Public Use
  Company Number: PHHY2012US098383

PATIENT
  Age: 28 Year
  Sex: Female

DRUGS (4)
  1. AMITRIPTYLINE [Suspect]
     Dosage: 125 mg, UNK
  2. DIAZEPAM [Suspect]
     Dosage: 5 mg, UNK
  3. NAPROXEN [Suspect]
     Dosage: 375 mg, PRN
  4. OXYCODONE AND ACETAMINOPHEN [Suspect]
     Dosage: 5/325 mg PRN

REACTIONS (8)
  - Vomiting [Recovered/Resolved]
  - Weight decreased [Recovered/Resolved]
  - Dehydration [Recovered/Resolved]
  - Back pain [Recovered/Resolved]
  - Anxiety [Recovered/Resolved]
  - Impaired work ability [Recovered/Resolved]
  - Withdrawal syndrome [Recovered/Resolved]
  - Exposure during pregnancy [Unknown]
